FAERS Safety Report 10548546 (Version 2)
Quarter: 2015Q1

REPORT INFORMATION
  Report Type: Report from Study
  Country: CA (occurrence: CA)
  Receive Date: 20141028
  Receipt Date: 20150116
  Transmission Date: 20150720
  Serious: Yes (Other)
  Sender: FDA-Public Use
  Company Number: CA-SA-2014SA143354

PATIENT
  Age: 64 Year
  Sex: Female

DRUGS (11)
  1. EPIRUBICIN [Concomitant]
     Active Substance: EPIRUBICIN
  2. FLUOROURACIL. [Concomitant]
     Active Substance: FLUOROURACIL
  3. TAXOL [Suspect]
     Active Substance: PACLITAXEL
     Dosage: FORM: INTRAVEOUS SOLUTION,THERAPY DURATION : 365
     Route: 065
     Dates: start: 2010, end: 2011
  4. CYCLOPHOSPHAMIDE. [Concomitant]
     Active Substance: CYCLOPHOSPHAMIDE
  5. PAROXETINE [Concomitant]
     Active Substance: PAROXETINE\PAROXETINE HYDROCHLORIDE
  6. TAXOTERE [Suspect]
     Active Substance: DOCETAXEL
     Dosage: FORM: INTRAVENOUS SOLUTION
     Route: 065
     Dates: start: 2010
  7. TRASTUZUMAB EMTANSINE [Suspect]
     Active Substance: ADO-TRASTUZUMAB EMTANSINE
     Indication: HER-2 POSITIVE BREAST CANCER
     Dosage: FORM: POWDER FOR SOLUTION INTRAVEOUS; STRENGTH: 100 MG AND 160 MG SINGLE-USE VIALS
     Route: 042
     Dates: start: 20140403, end: 20140515
  8. ZOPICLONE [Concomitant]
     Active Substance: ZOPICLONE
  9. FRAGMIN [Concomitant]
     Active Substance: DALTEPARIN SODIUM
  10. TRASTUZUMAB [Suspect]
     Active Substance: TRASTUZUMAB
     Indication: HER-2 POSITIVE BREAST CANCER
     Route: 042
     Dates: start: 201009
  11. CARBOPLATIN. [Concomitant]
     Active Substance: CARBOPLATIN
     Dosage: SOLUTION INTRAVENOUS

REACTIONS (5)
  - Paraesthesia [Not Recovered/Not Resolved]
  - Wrong technique in drug usage process [Unknown]
  - Pneumothorax [Not Recovered/Not Resolved]
  - Influenza like illness [Not Recovered/Not Resolved]
  - Malignant neoplasm progression [Not Recovered/Not Resolved]
